FAERS Safety Report 15456974 (Version 2)
Quarter: 2019Q2

REPORT INFORMATION
  Report Type: Spontaneous
  Country: IT (occurrence: IT)
  Receive Date: 20181002
  Receipt Date: 20190429
  Transmission Date: 20190711
  Serious: Yes (Other)
  Sender: FDA-Public Use
  Company Number: IT-MYLANLABS-2018M1071848

PATIENT
  Age: 77 Year
  Sex: Male

DRUGS (2)
  1. SERTRALINE [Suspect]
     Active Substance: SERTRALINE HYDROCHLORIDE
     Indication: ANXIETY
     Dosage: UNK
     Route: 048
     Dates: start: 20170101, end: 20171119
  2. ASCRIPTIN [Concomitant]
     Active Substance: ASPIRIN
     Indication: PRODUCT USED FOR UNKNOWN INDICATION
     Dosage: UNK

REACTIONS (5)
  - Arterial disorder [Unknown]
  - Decreased appetite [Unknown]
  - Respiratory failure [Unknown]
  - Intracranial aneurysm [Unknown]
  - Fatigue [Unknown]

NARRATIVE: CASE EVENT DATE: 20171119
